FAERS Safety Report 8969303 (Version 6)
Quarter: 2013Q4

REPORT INFORMATION
  Report Type: Spontaneous
  Country: US (occurrence: US)
  Receive Date: 20121218
  Receipt Date: 20131021
  Transmission Date: 20140711
  Serious: Yes (Death, Hospitalization, Other)
  Sender: FDA-Public Use
  Company Number: US-009507513-1112USA01464

PATIENT
  Sex: Female
  Weight: 58.96 kg

DRUGS (2)
  1. FOSAMAX [Suspect]
     Indication: OSTEOPOROSIS
     Dosage: 70 MG, QW
     Route: 048
     Dates: end: 2008
  2. TRICOR (FENOFIBRATE) [Concomitant]
     Indication: HYPERLIPIDAEMIA
     Dosage: 40 MG, QAM
     Route: 048

REACTIONS (102)
  - Femur fracture [Unknown]
  - Intramedullary rod insertion [Unknown]
  - Femur fracture [Unknown]
  - Intramedullary rod insertion [Unknown]
  - Cardiac failure congestive [Fatal]
  - Fluid overload [Unknown]
  - Tooth disorder [Unknown]
  - Adverse event [Unknown]
  - Dental implantation [Unknown]
  - Removal of foreign body from oesophagus [Unknown]
  - Mitral valve repair [Unknown]
  - Implantable defibrillator insertion [Unknown]
  - Hip arthroplasty [Unknown]
  - Hip arthroplasty [Unknown]
  - Knee arthroplasty [Unknown]
  - Syncope [Unknown]
  - Coagulopathy [Unknown]
  - Arterial repair [Unknown]
  - Cardiac arrest [Unknown]
  - Carotid endarterectomy [Unknown]
  - Cardiac failure congestive [Not Recovered/Not Resolved]
  - Renal failure chronic [Not Recovered/Not Resolved]
  - Renal artery stent placement [Unknown]
  - Asthenia [Unknown]
  - Low turnover osteopathy [Unknown]
  - Fall [Unknown]
  - Fall [Unknown]
  - Fall [Unknown]
  - Depression [Unknown]
  - Diabetic neuropathy [Unknown]
  - Wrist fracture [Unknown]
  - Urosepsis [Unknown]
  - Hyperuricaemia [Unknown]
  - Ischaemic cardiomyopathy [Unknown]
  - Tricuspid valve incompetence [Unknown]
  - Peripheral vascular disorder [Unknown]
  - Angioplasty [Unknown]
  - Dementia [Unknown]
  - Anxiety [Unknown]
  - Carotid artery stenosis [Unknown]
  - Anaemia [Unknown]
  - Cardiac cirrhosis [Unknown]
  - Sleep apnoea syndrome [Unknown]
  - Renal artery stenosis [Unknown]
  - Brain injury [Unknown]
  - Parkinsonism [Unknown]
  - Chronic obstructive pulmonary disease [Unknown]
  - Tooth infection [Unknown]
  - Periodontal disease [Unknown]
  - Endodontic procedure [Unknown]
  - Dysuria [Unknown]
  - Bunion operation [Unknown]
  - Haematuria [Unknown]
  - Gout [Unknown]
  - Overdose [Unknown]
  - Pain [Unknown]
  - Hyperkalaemia [Unknown]
  - Adverse drug reaction [Unknown]
  - Mitral valve disease [Unknown]
  - Mitral valve stenosis [Unknown]
  - Vascular graft occlusion [Unknown]
  - Coronary arterial stent insertion [Unknown]
  - Coronary angioplasty [Unknown]
  - Stent placement [Unknown]
  - Vascular pseudoaneurysm [Unknown]
  - Osteoarthritis [Unknown]
  - Hand fracture [Unknown]
  - Muscle strain [Unknown]
  - Diabetic complication [Unknown]
  - Weight decreased [Unknown]
  - Cataract operation [Unknown]
  - Tooth loss [Unknown]
  - Foot operation [Unknown]
  - Goitre [Unknown]
  - Muscle disorder [Unknown]
  - Hypoglycaemia [Unknown]
  - Peripheral ischaemia [Unknown]
  - Rotator cuff syndrome [Unknown]
  - Fall [Unknown]
  - Muscle strain [Unknown]
  - Angioplasty [Unknown]
  - Osteopenia [Unknown]
  - Cardioversion [Unknown]
  - Carotid artery occlusion [Unknown]
  - Oedema [Unknown]
  - Spinal osteoarthritis [Unknown]
  - Arteritis [Unknown]
  - Hypophagia [Unknown]
  - Hypotension [Unknown]
  - Hepatic cirrhosis [Unknown]
  - Amnesia [Unknown]
  - Delirium [Unknown]
  - Renal artery stent placement [Unknown]
  - Confusional state [Unknown]
  - Chest pain [Unknown]
  - Mental status changes [Unknown]
  - Asthenia [Unknown]
  - Abdominal distension [Unknown]
  - Erythema [Unknown]
  - Vertigo [Unknown]
  - Gastrooesophageal reflux disease [Unknown]
  - Back pain [Unknown]
